FAERS Safety Report 6382084-7 (Version None)
Quarter: 2009Q3

REPORT INFORMATION
  Report Type: 
  Country: None (occurrence: None)
  Receive Date: 20090930
  Receipt Date: 20090915
  Transmission Date: 20100115
  Serious: Yes (Hospitalization)
  Sender: FDA-Public Use
  Company Number: DE-BRISTOL-MYERS SQUIBB COMPANY-14794820

PATIENT
  Age: 57 Year
  Sex: Female
  Weight: 45 kg

DRUGS (2)
  1. CISPLATIN [Suspect]
     Indication: GASTROOESOPHAGEAL CANCER
     Dosage: DAY 1 OF CYCLE RECENT INF-25AUG09
     Route: 042
     Dates: start: 20090609
  2. XELODA [Suspect]
     Indication: GASTROOESOPHAGEAL CANCER
     Dosage: DAY1-15 DOSE REDUCED TO 500MG/M2
     Route: 048
     Dates: start: 20090609

REACTIONS (2)
  - FATIGUE [None]
  - PYREXIA [None]
